FAERS Safety Report 9017394 (Version 1)
Quarter: 2013Q1

REPORT INFORMATION
  Report Type: Other
  Country: PL (occurrence: PL)
  Receive Date: 20130117
  Receipt Date: 20130117
  Transmission Date: 20140127
  Serious: Yes (Hospitalization, Other)
  Sender: FDA-Public Use
  Company Number: PL-WATSON-2013-00371

PATIENT
  Age: 44 Year
  Sex: Female

DRUGS (1)
  1. CARBOPLATIN [Suspect]
     Indication: OVARIAN CANCER
     Dosage: 560 MG, UNKNOWN
     Route: 042
     Dates: start: 20121130, end: 20121130

REACTIONS (5)
  - Skin burning sensation [Unknown]
  - Dyspnoea [Unknown]
  - Asthenia [Unknown]
  - Retching [Unknown]
  - Blood pressure decreased [Unknown]
